FAERS Safety Report 8257137-9 (Version None)
Quarter: 2012Q2

REPORT INFORMATION
  Report Type: 
  Country: None (occurrence: None)
  Receive Date: 20120403
  Receipt Date: 20120326
  Transmission Date: 20120825
  Serious: Yes (Hospitalization, Other)
  Sender: FDA-Public Use
  Company Number: US-BAYER-2011-120230

PATIENT
  Age: 27 Year
  Sex: Female
  Weight: 88.435 kg

DRUGS (7)
  1. YASMIN [Suspect]
     Indication: ACNE
  2. YAZ [Suspect]
     Indication: PREMENSTRUAL SYNDROME
  3. YASMIN [Suspect]
     Indication: CONTRACEPTION
     Dosage: UNK
     Route: 048
     Dates: start: 20010101, end: 20070201
  4. YAZ [Suspect]
     Indication: ACNE
  5. MULTI-VITAMINS [Concomitant]
  6. YAZ [Suspect]
     Indication: CONTRACEPTION
     Dosage: UNK
     Route: 048
     Dates: start: 20070701, end: 20091201
  7. YASMIN [Suspect]
     Indication: PREMENSTRUAL SYNDROME

REACTIONS (6)
  - EMOTIONAL DISORDER [None]
  - GALLBLADDER DISORDER [None]
  - CHOLECYSTITIS CHRONIC [None]
  - ANXIETY [None]
  - PAIN [None]
  - BILIARY DYSKINESIA [None]
